FAERS Safety Report 8551120-1 (Version None)
Quarter: 2012Q3

REPORT INFORMATION
  Report Type: 
  Country: None (occurrence: None)
  Receive Date: 20120730
  Receipt Date: 20120723
  Transmission Date: 20120928
  Serious: Yes (Death, Hospitalization, Other)
  Sender: FDA-Public Use
  Company Number: JP-BAYER-2012-046535

PATIENT
  Age: 74 Year
  Sex: Male

DRUGS (8)
  1. SUMIFERON [Concomitant]
     Dosage: UNK
     Dates: start: 20120620, end: 20120711
  2. NEXAVAR [Suspect]
     Indication: RENAL CELL CARCINOMA
     Dosage: UNK
     Route: 048
     Dates: start: 20111205, end: 20111218
  3. NEXAVAR [Suspect]
     Dosage: DAILY DOSE 400 MG
     Route: 048
     Dates: start: 20111219, end: 20120509
  4. ZOLEDRONIC ACID [Concomitant]
     Dosage: UNK
     Dates: start: 20111123
  5. SUMIFERON [Concomitant]
     Dosage: UNK
     Dates: start: 20111118, end: 20120103
  6. SUMIFERON [Concomitant]
     Dosage: 3 MIU, BIW
     Dates: start: 20120104, end: 20120411
  7. NEXAVAR [Suspect]
     Dosage: DAILY DOSE 400 MG
     Route: 048
     Dates: start: 20120530, end: 20120711
  8. SUMIFERON [Concomitant]
     Dosage: UNK
     Dates: start: 20120426, end: 20120509

REACTIONS (9)
  - PLATELET COUNT DECREASED [None]
  - DIARRHOEA [None]
  - ANAEMIA [None]
  - INTERSTITIAL LUNG DISEASE [None]
  - CARDIAC FAILURE [None]
  - PNEUMONIA BACTERIAL [None]
  - DYSPNOEA [None]
  - MALAISE [None]
  - ALOPECIA [None]
